FAERS Safety Report 14415277 (Version 2)
Quarter: 2018Q1

REPORT INFORMATION
  Report Type: Report from Study
  Country: US (occurrence: US)
  Receive Date: 20180121
  Receipt Date: 20180311
  Transmission Date: 20180509
  Serious: Yes (Hospitalization, Other)
  Sender: FDA-Public Use
  Company Number: PHEH2017US042560

PATIENT
  Age: 77 Year
  Sex: Female
  Weight: 88 kg

DRUGS (7)
  1. CEFIXIME. [Concomitant]
     Active Substance: CEFIXIME
     Indication: PRODUCT USED FOR UNKNOWN INDICATION
     Route: 065
  2. VITAMIN D3 [Concomitant]
     Active Substance: CHOLECALCIFEROL
     Indication: PRODUCT USED FOR UNKNOWN INDICATION
     Route: 065
  3. COSENTYX [Suspect]
     Active Substance: SECUKINUMAB
     Indication: PSORIASIS
     Dosage: 300 MG, EVERY 4 WEEKS
     Route: 058
     Dates: start: 20160430
  4. CORTISONE [Concomitant]
     Active Substance: CORTISONE\HYDROCORTISONE
     Indication: PRODUCT USED FOR UNKNOWN INDICATION
     Route: 065
  5. FLUOXETINE [Concomitant]
     Active Substance: FLUOXETINE HYDROCHLORIDE
     Indication: PRODUCT USED FOR UNKNOWN INDICATION
     Route: 065
  6. STELARA [Concomitant]
     Active Substance: USTEKINUMAB
     Indication: PSORIASIS
     Dosage: 12 WEEKS
     Route: 058
     Dates: start: 2011, end: 2016
  7. COSENTYX [Suspect]
     Active Substance: SECUKINUMAB
     Dosage: 300 MG, EVERY 12 WEEKS
     Route: 058
     Dates: start: 20160729, end: 201711

REACTIONS (6)
  - Urinary tract infection enterococcal [Recovered/Resolved]
  - Glycosylated haemoglobin increased [Unknown]
  - Kidney infection [Unknown]
  - Haemoglobin decreased [Unknown]
  - Psoriasis [Not Recovered/Not Resolved]
  - Inappropriate schedule of drug administration [Unknown]

NARRATIVE: CASE EVENT DATE: 20160430
